FAERS Safety Report 7454061-6 (Version None)
Quarter: 2011Q2

REPORT INFORMATION
  Report Type: 
  Country: None (occurrence: None)
  Receive Date: 20110502
  Receipt Date: 20110427
  Transmission Date: 20111010
  Serious: Yes (Hospitalization, Other)
  Sender: FDA-Public Use
  Company Number: US-MERCK-0904USA03614

PATIENT
  Age: 66 Year
  Sex: Female
  Weight: 55 kg

DRUGS (10)
  1. FOSAMAX [Suspect]
     Route: 048
     Dates: start: 20000701, end: 20000701
  2. FOSAMAX [Suspect]
     Indication: OSTEOPOROSIS
     Route: 048
     Dates: start: 20010820, end: 20090421
  3. ASPIRIN [Concomitant]
     Route: 065
  4. CELEBREX [Concomitant]
     Route: 065
  5. FOSAMAX [Suspect]
     Indication: OSTEOPOROSIS PROPHYLAXIS
     Route: 048
     Dates: start: 20010820, end: 20090421
  6. PREMARIN [Concomitant]
     Indication: OESTROGEN REPLACEMENT THERAPY
     Route: 065
     Dates: start: 19640101
  7. HYZAAR [Concomitant]
     Indication: ESSENTIAL HYPERTENSION
     Route: 048
  8. FOSAMAX [Suspect]
     Route: 048
     Dates: start: 20000701, end: 20000701
  9. POTASSIUM (UNSPECIFIED) [Concomitant]
     Route: 065
  10. PRILOSEC [Concomitant]
     Route: 065

REACTIONS (63)
  - BRUXISM [None]
  - WHIPLASH INJURY [None]
  - VITAMIN D DEFICIENCY [None]
  - VERTIGO POSITIONAL [None]
  - PAIN IN EXTREMITY [None]
  - OTORRHOEA [None]
  - ROAD TRAFFIC ACCIDENT [None]
  - SPINAL COLUMN STENOSIS [None]
  - ABNORMAL SENSATION IN EYE [None]
  - JAW DISORDER [None]
  - HYPERVENTILATION [None]
  - BURNING MOUTH SYNDROME [None]
  - BONE DISORDER [None]
  - HEART RATE IRREGULAR [None]
  - GINGIVAL INFECTION [None]
  - MORTON'S NEUROMA [None]
  - TOOTH DISORDER [None]
  - DERMAL CYST [None]
  - RHINITIS ALLERGIC [None]
  - HYPOTHYROIDISM [None]
  - INTERVERTEBRAL DISC DEGENERATION [None]
  - CERVICAL SPINAL STENOSIS [None]
  - BONE LOSS [None]
  - INTERVERTEBRAL DISC DISORDER [None]
  - SYNOVITIS [None]
  - WEIGHT DECREASED [None]
  - BENIGN BREAST NEOPLASM [None]
  - OSTEONECROSIS OF JAW [None]
  - CATARACT [None]
  - TENOSYNOVITIS STENOSANS [None]
  - DIZZINESS [None]
  - STRESS URINARY INCONTINENCE [None]
  - TOOTHACHE [None]
  - HERPES ZOSTER [None]
  - CARDIAC DISORDER [None]
  - ANAEMIA [None]
  - DENTAL CARIES [None]
  - FATIGUE [None]
  - JOINT EFFUSION [None]
  - MOUTH HAEMORRHAGE [None]
  - SYNCOPE [None]
  - PULPITIS DENTAL [None]
  - HAEMORRHOIDS [None]
  - INJURY [None]
  - DIVERTICULUM [None]
  - BLOOD PRESSURE INADEQUATELY CONTROLLED [None]
  - SPINAL OSTEOARTHRITIS [None]
  - HEAD INJURY [None]
  - MIGRAINE [None]
  - TOOTH ABSCESS [None]
  - TONGUE GEOGRAPHIC [None]
  - THYROID NEOPLASM [None]
  - SPONDYLOLISTHESIS [None]
  - IMPAIRED HEALING [None]
  - SCIATICA [None]
  - CONTUSION [None]
  - GASTROOESOPHAGEAL REFLUX DISEASE [None]
  - FALL [None]
  - ORAL PAIN [None]
  - ORAL INFECTION [None]
  - RECTAL HAEMORRHAGE [None]
  - JOINT DISLOCATION [None]
  - CARPAL TUNNEL SYNDROME [None]
